FAERS Safety Report 4583866-4 (Version None)
Quarter: 2005Q1

REPORT INFORMATION
  Report Type: 
  Country: None (occurrence: None)
  Receive Date: 20050211
  Receipt Date: 20050201
  Transmission Date: 20050727
  Serious: Yes (Hospitalization)
  Sender: FDA-Public Use
  Company Number: 2005SE00634

PATIENT
  Age: 55 Year
  Sex: Male

DRUGS (2)
  1. KENZEN [Suspect]
     Indication: HYPERTENSION
     Dosage: 8 MG QD PO
     Route: 048
     Dates: start: 20020101, end: 20050125
  2. ODDIBIL [Concomitant]

REACTIONS (1)
  - CYTOLYTIC HEPATITIS [None]
